FAERS Safety Report 25499761 (Version 1)
Quarter: 2025Q3

REPORT INFORMATION
  Report Type: Report from Study
  Country: US (occurrence: US)
  Receive Date: 20250701
  Receipt Date: 20250701
  Transmission Date: 20251020
  Serious: Yes (Hospitalization, Other)
  Sender: ABBVIE
  Company Number: US-ABBVIE-6344807

PATIENT
  Age: 26 Year
  Sex: Male

DRUGS (1)
  1. RINVOQ [Suspect]
     Active Substance: UPADACITINIB
     Indication: Crohn^s disease
     Route: 048
     Dates: start: 20240702

REACTIONS (10)
  - Sepsis [Unknown]
  - Abdominal pain upper [Unknown]
  - Abscess rupture [Unknown]
  - Ulcer [Unknown]
  - Escherichia infection [Unknown]
  - Ileostomy [Unknown]
  - Fatigue [Unknown]
  - Hyperhidrosis [Unknown]
  - White blood cell count increased [Unknown]
  - Large intestine infection [Recovering/Resolving]

NARRATIVE: CASE EVENT DATE: 20250101
